FAERS Safety Report 5256107-2 (Version None)
Quarter: 2007Q1

REPORT INFORMATION
  Report Type: 
  Country: None (occurrence: None)
  Receive Date: 20070306
  Receipt Date: 20070223
  Transmission Date: 20070707
  Serious: Yes (Hospitalization)
  Sender: FDA-Public Use
  Company Number: US-JNJFOC-20061204566

PATIENT
  Sex: Female
  Weight: 65.9 kg

DRUGS (2)
  1. ORTHO EVRA [Suspect]
     Indication: CONTRACEPTION
     Route: 062
  2. ALBUTEROL [Concomitant]
     Indication: ASTHMA

REACTIONS (1)
  - PULMONARY EMBOLISM [None]
